FAERS Safety Report 21341213 (Version 1)
Quarter: 2022Q3

REPORT INFORMATION
  Report Type: Spontaneous
  Country: DK (occurrence: DK)
  Receive Date: 20220916
  Receipt Date: 20220916
  Transmission Date: 20221027
  Serious: Yes (Other)
  Sender: FDA-Public Use
  Company Number: DK-SUN PHARMACEUTICAL INDUSTRIES LTD-2022R1-354772

PATIENT
  Age: 73 Year
  Sex: Female

DRUGS (1)
  1. MORPHINE [Suspect]
     Active Substance: MORPHINE
     Indication: Product used for unknown indication
     Route: 042

REACTIONS (1)
  - Anaphylactic reaction [Unknown]
